FAERS Safety Report 17454046 (Version 4)
Quarter: 2020Q3

REPORT INFORMATION
  Report Type: Spontaneous
  Country: JP (occurrence: JP)
  Receive Date: 20200224
  Receipt Date: 20200717
  Transmission Date: 20201102
  Serious: Yes (Death, Hospitalization, Other)
  Sender: FDA-Public Use
  Company Number: JP-BRISTOL-MYERS SQUIBB COMPANY-BMS-2020-013840

PATIENT
  Age: 70 Year
  Sex: Female

DRUGS (7)
  1. POMALYST [Concomitant]
     Active Substance: POMALIDOMIDE
     Indication: PRODUCT USED FOR UNKNOWN INDICATION
     Dosage: 4 MILLIGRAM
     Route: 048
     Dates: start: 2019, end: 20200129
  2. DEXAMETHASONE. [Concomitant]
     Active Substance: DEXAMETHASONE
     Indication: PRODUCT USED FOR UNKNOWN INDICATION
     Dosage: 28 MILLIGRAM, QWK
     Route: 048
     Dates: start: 20200108, end: 20200129
  3. DEXAMETHASONE. [Concomitant]
     Active Substance: DEXAMETHASONE
     Indication: PRODUCT USED FOR UNKNOWN INDICATION
     Dosage: 8 MILLIGRAM, QWK
     Route: 041
     Dates: start: 20200108, end: 20200129
  4. FAMOTIDINE. [Concomitant]
     Active Substance: FAMOTIDINE
     Indication: PRODUCT USED FOR UNKNOWN INDICATION
     Dosage: 20 MILLIGRAM, QWK
     Route: 041
     Dates: start: 20200108, end: 20200129
  5. EMPLICITI [Suspect]
     Active Substance: ELOTUZUMAB
     Indication: PLASMA CELL MYELOMA
     Dosage: 10 MILLIGRAM/KILOGRAM, QWK
     Route: 041
     Dates: start: 20200108, end: 20200129
  6. RESTAMIN [DIPHENHYDRAMINE HYDROCHLORIDE] [Concomitant]
     Indication: PRODUCT USED FOR UNKNOWN INDICATION
     Dosage: 5 TAB, QWK
     Route: 048
     Dates: start: 20200108, end: 20200129
  7. CALONAL [Concomitant]
     Active Substance: ACETAMINOPHEN
     Indication: PRODUCT USED FOR UNKNOWN INDICATION
     Dosage: 2 TAB, QWK
     Route: 048
     Dates: start: 20200108, end: 20200129

REACTIONS (6)
  - Malignant neoplasm progression [Unknown]
  - Depressed level of consciousness [Unknown]
  - Leukaemia [Unknown]
  - Central nervous system lesion [Unknown]
  - Meningitis [Fatal]
  - Liver function test increased [Unknown]

NARRATIVE: CASE EVENT DATE: 20200204
